FAERS Safety Report 24306624 (Version 1)
Quarter: 2024Q3

REPORT INFORMATION
  Report Type: Spontaneous
  Country: ES (occurrence: ES)
  Receive Date: 20240911
  Receipt Date: 20240911
  Transmission Date: 20241017
  Serious: Yes (Hospitalization, Other)
  Sender: ACCORD
  Company Number: None

PATIENT
  Age: 86 Year
  Sex: Female

DRUGS (8)
  1. METHOTREXATE [Suspect]
     Active Substance: METHOTREXATE
     Indication: Polymyalgia rheumatica
     Dosage: 6 TABLETS A WEEK, 2.5 MG
     Dates: start: 20231123, end: 20240526
  2. PREDNISONE [Concomitant]
     Active Substance: PREDNISONE
     Dosage: 5 MG
  3. FUROSEMIDE [Concomitant]
     Active Substance: FUROSEMIDE
     Dosage: 40 MG
  4. LEVOTHYROXINE SODIUM [Concomitant]
     Active Substance: LEVOTHYROXINE SODIUM
     Dosage: 50 MICROGRAMS
  5. OMEPRAZOLE [Concomitant]
     Active Substance: OMEPRAZOLE
  6. CALCIUM PIDOLATE\CHOLECALCIFEROL [Concomitant]
     Active Substance: CALCIUM PIDOLATE\CHOLECALCIFEROL
     Dosage: 600 MG/400 IU
  7. ELIQUIS [Concomitant]
     Active Substance: APIXABAN
     Dosage: 5 MG
  8. FOLIC ACID [Concomitant]
     Active Substance: FOLIC ACID

REACTIONS (4)
  - Stomatitis [Recovered/Resolved]
  - Febrile neutropenia [Recovered/Resolved]
  - Toxicity to various agents [Recovered/Resolved]
  - Pancytopenia [Recovered/Resolved]

NARRATIVE: CASE EVENT DATE: 20240524
